FAERS Safety Report 13135350 (Version 2)
Quarter: 2017Q1

REPORT INFORMATION
  Report Type: Report from Study
  Country: AU (occurrence: AU)
  Receive Date: 20170120
  Receipt Date: 20170222
  Transmission Date: 20170428
  Serious: Yes (Other)
  Sender: FDA-Public Use
  Company Number: AU-VERTEX PHARMACEUTICALS-2017-000278

PATIENT
  Age: 13 Year
  Sex: Male
  Weight: 51 kg

DRUGS (13)
  1. CREON [Concomitant]
     Active Substance: PANCRELIPASE AMYLASE\PANCRELIPASE LIPASE\PANCRELIPASE PROTEASE
     Indication: PANCREATIC INSUFFICIENCY
     Dosage: 100000 UNK, PRN
     Route: 048
     Dates: start: 200308
  2. PARACETAMOL [Concomitant]
     Active Substance: ACETAMINOPHEN
     Indication: PYREXIA
     Dosage: 1 G, BID
     Route: 048
     Dates: start: 20170115, end: 20170115
  3. VX-661/VX-770 [Suspect]
     Active Substance: INVESTIGATIONAL PRODUCT
     Indication: CYSTIC FIBROSIS
     Dosage: 100 MG, QD
     Route: 048
     Dates: start: 20161215
  4. SALT [Concomitant]
     Active Substance: SODIUM CHLORIDE
     Dosage: 1 DF, BID
     Route: 048
     Dates: start: 200308
  5. OSTELIN [Concomitant]
     Active Substance: ERGOCALCIFEROL
     Dosage: 2 DF, QD
     Route: 048
     Dates: start: 20141104
  6. TILADE [Concomitant]
     Active Substance: NEDOCROMIL SODIUM
     Indication: ASTHMA
     Dosage: 2 PUFFS, BID
     Route: 055
     Dates: start: 20150211
  7. FLIXOTIDE [Concomitant]
     Active Substance: FLUTICASONE PROPIONATE
     Indication: ASTHMA
     Dosage: 250 MCG, BID
     Route: 055
     Dates: start: 20040915
  8. HYPERTONIC SALINE SOLUTION [Concomitant]
     Active Substance: SODIUM CHLORIDE
     Dosage: 4 ML, QD
     Route: 055
     Dates: start: 20081001
  9. SALBUTAMOL [Concomitant]
     Active Substance: ALBUTEROL
     Indication: ASTHMA
     Dosage: 400 MCG, BID
     Route: 055
     Dates: start: 20040915
  10. VX-770/VX-661 [Suspect]
     Active Substance: INVESTIGATIONAL PRODUCT
     Indication: CYSTIC FIBROSIS
     Dosage: 150 MG, BID
     Route: 048
     Dates: start: 20161215
  11. OMEPRAZOLE. [Concomitant]
     Active Substance: OMEPRAZOLE
     Indication: REFLUX GASTRITIS
     Dosage: 200 MG, BID
     Route: 048
     Dates: start: 20031203
  12. FLUCLOXACILLIN [Concomitant]
     Active Substance: FLUCLOXACILLIN
     Dosage: 250 MG, BID
     Route: 048
     Dates: start: 20031105
  13. OSMOLAX [Concomitant]
     Indication: CONSTIPATION
     Dosage: 1 SCOOP, PRN
     Route: 048
     Dates: start: 20150429

REACTIONS (1)
  - Sunburn [Recovered/Resolved]

NARRATIVE: CASE EVENT DATE: 20170109
